FAERS Safety Report 8081126-0 (Version None)
Quarter: 2012Q1

REPORT INFORMATION
  Report Type: 
  Country: None (occurrence: None)
  Receive Date: 20120130
  Receipt Date: 20120120
  Transmission Date: 20120608
  Serious: Yes (Death, Hospitalization)
  Sender: FDA-Public Use
  Company Number: US-GLAXOSMITHKLINE-A0898281A

PATIENT
  Age: 80 Year
  Sex: Female

DRUGS (5)
  1. LIPITOR [Concomitant]
  2. GLYBURIDE [Concomitant]
  3. LASIX [Concomitant]
  4. LISINOPRIL [Concomitant]
  5. AVANDIA [Suspect]
     Indication: DIABETES MELLITUS
     Dosage: 4MG PER DAY
     Route: 048
     Dates: end: 20071201

REACTIONS (4)
  - SUDDEN DEATH [None]
  - FEMUR FRACTURE [None]
  - CARDIAC FAILURE CONGESTIVE [None]
  - CARDIAC PACEMAKER INSERTION [None]
